FAERS Safety Report 11920071 (Version 1)
Quarter: 2016Q1

REPORT INFORMATION
  Report Type: Spontaneous
  Country: CA (occurrence: CA)
  Receive Date: 20160115
  Receipt Date: 20160115
  Transmission Date: 20160526
  Serious: Yes (Other)
  Sender: FDA-Public Use
  Company Number: CA-UCBSA-030313

PATIENT
  Age: 52 Year
  Sex: Female
  Weight: 108 kg

DRUGS (6)
  1. FOLIC ACID. [Concomitant]
     Active Substance: FOLIC ACID
     Indication: RHEUMATOID ARTHRITIS
     Dosage: UNK UNK, ONCE DAILY (QD)
     Route: 048
     Dates: start: 2007
  2. CIMZIA [Suspect]
     Active Substance: CERTOLIZUMAB PEGOL
     Dosage: 400 MG, UNK
     Dates: start: 20110627, end: 2011
  3. CIMZIA [Suspect]
     Active Substance: CERTOLIZUMAB PEGOL
     Indication: RHEUMATOID ARTHRITIS
     Dosage: 400 MG, EV 4 WEEKS
     Route: 058
     Dates: start: 20091211, end: 2011
  4. PALAFER [Concomitant]
     Active Substance: FERROUS FUMARATE
     Indication: RHEUMATOID ARTHRITIS
     Dosage: 300 MG, ONCE DAILY (QD)
     Route: 048
     Dates: start: 200911
  5. GABAPENTIN. [Concomitant]
     Active Substance: GABAPENTIN
     Dosage: 600 MG, 2X/DAY (BID)
     Dates: start: 200907
  6. METHOTREXATE [Concomitant]
     Active Substance: METHOTREXATE
     Indication: RHEUMATOID ARTHRITIS
     Dosage: WEEKLY
     Route: 058
     Dates: start: 20060217

REACTIONS (5)
  - Knee arthroplasty [Recovering/Resolving]
  - Influenza like illness [Recovering/Resolving]
  - Rheumatoid arthritis [Recovering/Resolving]
  - Acrochordon [Recovered/Resolved]
  - Rhinitis [Recovering/Resolving]

NARRATIVE: CASE EVENT DATE: 2011
